FAERS Safety Report 10268393 (Version 1)
Quarter: 2014Q2

REPORT INFORMATION
  Report Type: Spontaneous
  Country: FR (occurrence: FR)
  Receive Date: 20140630
  Receipt Date: 20140630
  Transmission Date: 20141212
  Serious: Yes (Other)
  Sender: FDA-Public Use
  Company Number: FR-JNJFOC-20140613447

PATIENT
  Sex: 0

DRUGS (6)
  1. DOXORUBICIN [Suspect]
     Indication: PLASMACYTOMA
     Route: 065
     Dates: start: 20101104
  2. DEXAMETHASONE [Interacting]
     Indication: PLASMACYTOMA
     Route: 065
     Dates: start: 20101104
  3. VELCADE [Interacting]
     Indication: PLASMACYTOMA
     Route: 042
     Dates: start: 20101104
  4. LENALIDOMIDE [Interacting]
     Indication: PLASMACYTOMA
     Route: 065
  5. RIFAMPICINE [Interacting]
     Indication: LATENT TUBERCULOSIS
     Route: 065
     Dates: start: 20101203, end: 20110223
  6. ISONIAZID [Concomitant]
     Route: 065
     Dates: start: 20101203, end: 20110223

REACTIONS (4)
  - Latent tuberculosis [Unknown]
  - Drug interaction [Unknown]
  - Transaminases increased [Unknown]
  - Gamma-glutamyltransferase increased [Unknown]
